FAERS Safety Report 8256848-9 (Version None)
Quarter: 2012Q2

REPORT INFORMATION
  Report Type: 
  Country: None (occurrence: None)
  Receive Date: 20120403
  Receipt Date: 20120328
  Transmission Date: 20120825
  Serious: Yes (Other)
  Sender: FDA-Public Use
  Company Number: US-PFIZER INC-2012036978

PATIENT
  Sex: Female

DRUGS (1)
  1. DILANTIN-125 [Suspect]
     Dosage: 100 MG, (2 PO BID)
     Route: 048

REACTIONS (3)
  - IMPAIRED WORK ABILITY [None]
  - VISION BLURRED [None]
  - CONVULSION [None]
